FAERS Safety Report 9415484 (Version 1)
Quarter: 2013Q3

REPORT INFORMATION
  Report Type: Spontaneous
  Country: CA (occurrence: CA)
  Receive Date: 20130723
  Receipt Date: 20130723
  Transmission Date: 20140515
  Serious: Yes (Other)
  Sender: FDA-Public Use
  Company Number: CA-PFIZER INC-2013211958

PATIENT
  Age: 52 Year
  Sex: Female
  Weight: 90 kg

DRUGS (7)
  1. CELEBREX [Suspect]
     Dosage: UNK
     Dates: end: 2013
  2. ACTEMRA [Suspect]
     Indication: RHEUMATOID ARTHRITIS
     Dosage: 720 MG EVERY 4 WEEKS
     Route: 042
     Dates: start: 20120814, end: 2013
  3. TYLENOL 3 [Suspect]
     Dosage: UNK
     Dates: end: 2013
  4. PAXIL [Concomitant]
     Dosage: UNK
  5. NEXIUM [Concomitant]
     Dosage: UNK
  6. PERCOCET [Concomitant]
     Dosage: AS REQUIRED
  7. ATACAND PLUS [Concomitant]
     Dosage: UNK

REACTIONS (3)
  - Hepatic steatosis [Not Recovered/Not Resolved]
  - Hepatic pain [Not Recovered/Not Resolved]
  - Hepatic enzyme increased [Not Recovered/Not Resolved]
